FAERS Safety Report 13105238 (Version 1)
Quarter: 2017Q1

REPORT INFORMATION
  Report Type: Spontaneous
  Country: US (occurrence: US)
  Receive Date: 20170111
  Receipt Date: 20170111
  Transmission Date: 20170428
  Serious: No
  Sender: FDA-Public Use
  Company Number: ALCN2017US000582

PATIENT
  Age: 68 Year
  Sex: Female
  Weight: 68.27 kg

DRUGS (2)
  1. OMNIPRED [Suspect]
     Active Substance: PREDNISOLONE ACETATE
     Indication: PRODUCT USED FOR UNKNOWN INDICATION
     Dosage: UNK
     Route: 047
     Dates: start: 20160809, end: 20160906
  2. VIGAMOX [Suspect]
     Active Substance: MOXIFLOXACIN HYDROCHLORIDE
     Indication: PRODUCT USED FOR UNKNOWN INDICATION
     Dosage: UNK
     Route: 047
     Dates: start: 20160809, end: 20160815

REACTIONS (1)
  - Refraction disorder [Recovered/Resolved]

NARRATIVE: CASE EVENT DATE: 20160810
